FAERS Safety Report 9341767 (Version 1)
Quarter: 2013Q2

REPORT INFORMATION
  Report Type: Spontaneous
  Country: IT (occurrence: IT)
  Receive Date: 20130611
  Receipt Date: 20130611
  Transmission Date: 20140414
  Serious: Yes (Hospitalization)
  Sender: FDA-Public Use
  Company Number: IT-BAYER-2013-069623

PATIENT
  Age: 62 Year
  Sex: Female

DRUGS (1)
  1. ADALAT [Suspect]
     Dosage: UNK
     Dates: start: 20130220, end: 20130224

REACTIONS (2)
  - Hypertension [Recovered/Resolved]
  - Tachycardia [Recovered/Resolved]
